FAERS Safety Report 5001317-2 (Version None)
Quarter: 2006Q2

REPORT INFORMATION
  Report Type: 
  Country: None (occurrence: None)
  Receive Date: 20060512
  Receipt Date: 20051021
  Transmission Date: 20061013
  Serious: Yes (Death)
  Sender: FDA-Public Use
  Company Number: US-MERCK-0510USA08809

PATIENT
  Age: 35 Year
  Sex: Male
  Weight: 61 kg

DRUGS (3)
  1. VIOXX [Suspect]
     Indication: BACK PAIN
     Route: 048
     Dates: start: 20021101, end: 20021201
  2. ASPIRIN [Suspect]
     Route: 065
  3. COUGH, COLD, AND FLU THERAPIES (UNSPECIFIED) [Concomitant]
     Route: 065

REACTIONS (3)
  - DYSPEPSIA [None]
  - MYOCARDIAL INFARCTION [None]
  - OVERDOSE [None]
